FAERS Safety Report 9960179 (Version 1)
Quarter: 2014Q1

REPORT INFORMATION
  Report Type: Report from Study
  Country: US (occurrence: US)
  Receive Date: 20140305
  Receipt Date: 20140305
  Transmission Date: 20141002
  Serious: No
  Sender: FDA-Public Use
  Company Number: US-ABBVIE-13P-163-1105069-00

PATIENT
  Sex: Female
  Weight: 103.06 kg

DRUGS (7)
  1. HUMIRA [Suspect]
     Indication: CROHN^S DISEASE
     Dates: start: 20130525
  2. LEVOTHYROXINE [Concomitant]
     Indication: THYROID DISORDER
  3. PREDNISONE [Concomitant]
     Indication: CROHN^S DISEASE
  4. IMURAN [Concomitant]
     Indication: CROHN^S DISEASE
  5. LYRICA [Concomitant]
     Indication: PAIN
  6. TRAMADOL [Concomitant]
     Indication: PAIN
  7. BENTYL [Concomitant]
     Indication: CROHN^S DISEASE

REACTIONS (1)
  - Injection site pain [Recovered/Resolved]
